FAERS Safety Report 23680567 (Version 1)
Quarter: 2024Q1

REPORT INFORMATION
  Report Type: Spontaneous
  Country: US (occurrence: US)
  Receive Date: 20240328
  Receipt Date: 20240328
  Transmission Date: 20240410
  Serious: No
  Sender: FDA-Public Use
  Company Number: US-SANDOZ-SDZ2024US031376

PATIENT
  Sex: Male

DRUGS (2)
  1. OMNITROPE [Suspect]
     Active Substance: SOMATROPIN
     Indication: Hypopituitarism
     Dosage: 0.2 MG/KG 2 DOSE EVERY N/A N/A,5 MG / 1.5 ML
     Route: 058
  2. OMNITROPE [Suspect]
     Active Substance: SOMATROPIN
     Indication: Hypopituitarism
     Dosage: 0.2 MG/KG 2 DOSE EVERY N/A N/A,5 MG / 1.5 ML
     Route: 058

REACTIONS (3)
  - Wrong technique in device usage process [Unknown]
  - Incorrect dose administered by device [Unknown]
  - Device leakage [Unknown]
